FAERS Safety Report 20223583 (Version 1)
Quarter: 2021Q4

REPORT INFORMATION
  Report Type: Spontaneous
  Country: EG (occurrence: EG)
  Receive Date: 20211223
  Receipt Date: 20211223
  Transmission Date: 20220303
  Serious: Yes (Other)
  Sender: FDA-Public Use
  Company Number: EG-NOVARTISPH-NVSC2021EG282401

PATIENT
  Age: 21 Year
  Sex: Female

DRUGS (6)
  1. METHOTREXATE [Suspect]
     Active Substance: METHOTREXATE
     Indication: Psoriasis
     Dosage: UNK
     Route: 058
     Dates: end: 2019
  2. METHOTREXATE [Suspect]
     Active Substance: METHOTREXATE
     Dosage: 1 CM PER WEEK
     Route: 058
     Dates: start: 202104, end: 202105
  3. NEORAL [Suspect]
     Active Substance: CYCLOSPORINE
     Indication: Psoriasis
     Dosage: 100 MG, 3 TABLET QD
     Route: 065
     Dates: start: 202109, end: 202110
  4. OMEGA 3 [Concomitant]
     Active Substance: CAPSAICIN
     Indication: Psoriasis
     Dosage: 1 DOSAGE FORM, BID
     Route: 065
     Dates: start: 202103
  5. LEVONEX [Concomitant]
     Indication: Psoriasis
     Dosage: UNK, QD
     Route: 065
     Dates: start: 202103
  6. EVASTINE [Concomitant]
     Indication: Psoriasis
     Dosage: 1 DOSAGE FORM, BID
     Route: 065
     Dates: start: 202103

REACTIONS (14)
  - Alopecia [Recovering/Resolving]
  - Angina pectoris [Recovered/Resolved]
  - Aspartate aminotransferase increased [Unknown]
  - Vitamin D decreased [Unknown]
  - Psoriasis [Not Recovered/Not Resolved]
  - Blood glucose increased [Unknown]
  - Pain [Not Recovered/Not Resolved]
  - Bone pain [Not Recovered/Not Resolved]
  - Mental disorder [Not Recovered/Not Resolved]
  - Arthralgia [Not Recovered/Not Resolved]
  - White blood cells urine positive [Not Recovered/Not Resolved]
  - Micturition urgency [Not Recovered/Not Resolved]
  - Intentional product misuse [Not Recovered/Not Resolved]
  - Drug ineffective [Not Recovered/Not Resolved]

NARRATIVE: CASE EVENT DATE: 20210301
